FAERS Safety Report 6871235-3 (Version None)
Quarter: 2010Q3

REPORT INFORMATION
  Report Type: 
  Country: None (occurrence: None)
  Receive Date: 20100723
  Receipt Date: 20100712
  Transmission Date: 20110219
  Serious: Yes (Hospitalization, Other)
  Sender: FDA-Public Use
  Company Number: US-PFIZER INC-2010054198

PATIENT
  Sex: Female

DRUGS (5)
  1. CHANTIX [Suspect]
     Indication: EX-TOBACCO USER
     Dosage: 1 MG, UNK
     Dates: start: 20080114, end: 20080420
  2. POLYETHYLENE GLYCOL [Concomitant]
     Dosage: UNK
     Dates: start: 20070101, end: 20090101
  3. SIMVASTATIN [Concomitant]
     Indication: BLOOD CHOLESTEROL
     Dosage: 20 MG, UNK
     Dates: start: 20040101
  4. ALENDRONATE SODIUM [Concomitant]
     Indication: BONE DENSITY ABNORMAL
     Dosage: UNK
     Dates: start: 20030101, end: 20090101
  5. ZITHROMAX [Concomitant]
     Dosage: UNK
     Dates: start: 20000101, end: 20100101

REACTIONS (7)
  - INTENTIONAL OVERDOSE [None]
  - LIVER FUNCTION TEST ABNORMAL [None]
  - NERVE INJURY [None]
  - PERONEAL NERVE PALSY [None]
  - SUICIDE ATTEMPT [None]
  - THINKING ABNORMAL [None]
  - TYPE 2 DIABETES MELLITUS [None]
